FAERS Safety Report 5756014-2 (Version None)
Quarter: 2008Q2

REPORT INFORMATION
  Report Type: 
  Country: None (occurrence: None)
  Receive Date: 20080602
  Receipt Date: 20080522
  Transmission Date: 20081010
  Serious: Yes (Hospitalization)
  Sender: FDA-Public Use
  Company Number: PHHY2008ES08763

PATIENT

DRUGS (3)
  1. DIOVAN HCT [Suspect]
     Indication: HYPERTENSION
     Dosage: 1 DF, QD
     Dates: start: 20071220
  2. PANTOPRAZOLE [Suspect]
     Dosage: 40 MG DAILY
     Route: 048
     Dates: start: 20080305
  3. CARBAMAZEPINE [Suspect]
     Indication: NEURALGIA
     Dosage: UNK
     Route: 048
     Dates: start: 20080402, end: 20080416

REACTIONS (2)
  - RASH [None]
  - THROMBOCYTOPENIA [None]
